FAERS Safety Report 20004657 (Version 1)
Quarter: 2021Q4

REPORT INFORMATION
  Report Type: Spontaneous
  Country: US (occurrence: US)
  Receive Date: 20211027
  Receipt Date: 20211027
  Transmission Date: 20220303
  Serious: No
  Sender: FDA-Public Use
  Company Number: US-PERRIGO-21US001367

PATIENT
  Age: 63 Year
  Sex: Female
  Weight: 58.96 kg

DRUGS (1)
  1. CICLOPIROX [Suspect]
     Active Substance: CICLOPIROX
     Indication: Onychomycosis
     Dosage: THIN LAYER, QD
     Route: 061
     Dates: start: 20201228

REACTIONS (1)
  - Wrong technique in product usage process [Not Recovered/Not Resolved]

NARRATIVE: CASE EVENT DATE: 20201228
